FAERS Safety Report 13377875 (Version 1)
Quarter: 2017Q1

REPORT INFORMATION
  Report Type: Spontaneous
  Country: US (occurrence: US)
  Receive Date: 20170328
  Receipt Date: 20170328
  Transmission Date: 20170429
  Serious: No
  Sender: FDA-Public Use
  Company Number: US-009507513-1703USA003748

PATIENT
  Age: 68 Year
  Sex: Female

DRUGS (3)
  1. EMEND [Suspect]
     Active Substance: APREPITANT
     Indication: PREMEDICATION
     Dosage: 150 MG, ONCE, INFUSION
     Route: 042
     Dates: start: 20170307
  2. ARIMIDEX [Concomitant]
     Active Substance: ANASTROZOLE
  3. EMEND [Suspect]
     Active Substance: APREPITANT
     Dosage: 150 MG, ONCE, INFUSION
     Route: 042
     Dates: start: 20170307

REACTIONS (1)
  - Urticaria [Recovered/Resolved]

NARRATIVE: CASE EVENT DATE: 20170307
